FAERS Safety Report 19093365 (Version 3)
Quarter: 2021Q2

REPORT INFORMATION
  Report Type: Report from Study
  Country: BE (occurrence: BE)
  Receive Date: 20210405
  Receipt Date: 20210609
  Transmission Date: 20210717
  Serious: Yes (Death, Hospitalization)
  Sender: FDA-Public Use
  Company Number: NVSC2021BE076436

PATIENT
  Age: 77 Year
  Sex: Male
  Weight: 77 kg

DRUGS (2)
  1. ELTROMBOPAG [Suspect]
     Active Substance: ELTROMBOPAG
     Indication: IMMUNE THROMBOCYTOPENIA
  2. ELTROMBOPAG [Suspect]
     Active Substance: ELTROMBOPAG
     Indication: THROMBOCYTOPENIA
     Dosage: 150 MG
     Route: 048
     Dates: start: 20200910, end: 20201021

REACTIONS (12)
  - Haemoglobin decreased [Unknown]
  - Neutrophil count decreased [Unknown]
  - Immune thrombocytopenia [Unknown]
  - Pneumonia aspiration [Unknown]
  - Thrombocytopenia [Unknown]
  - Pneumonia [Unknown]
  - Malignant ascites [Unknown]
  - Lymphocyte count decreased [Unknown]
  - Red blood cell count decreased [Unknown]
  - Haematocrit decreased [Unknown]
  - Death [Fatal]
  - Pain [Unknown]

NARRATIVE: CASE EVENT DATE: 20200910
